FAERS Safety Report 23421889 (Version 1)
Quarter: 2024Q1

REPORT INFORMATION
  Report Type: Report from Study
  Country: US (occurrence: US)
  Receive Date: 20240119
  Receipt Date: 20240119
  Transmission Date: 20240410
  Serious: Yes (Hospitalization, Other)
  Sender: FDA-Public Use
  Company Number: US-GILEAD-2024-0658843

PATIENT
  Sex: Male

DRUGS (16)
  1. AZTREONAM LYSINE [Suspect]
     Active Substance: AZTREONAM LYSINE
     Indication: Cystic fibrosis
     Dosage: 75 MG, TIDNHALE 75 MG TOTAL EVERY 8 HOURS. USE ALTERNATING MONTHS
     Route: 055
  2. HUMALOG [Concomitant]
     Active Substance: INSULIN LISPRO
  3. CREON [Concomitant]
     Active Substance: PANCRELIPASE AMYLASE\PANCRELIPASE LIPASE\PANCRELIPASE PROTEASE
  4. FUROSEMIDE [Concomitant]
     Active Substance: FUROSEMIDE
  5. ALBUTEROL SULFATE [Concomitant]
     Active Substance: ALBUTEROL SULFATE
  6. ZINC [Concomitant]
     Active Substance: PYRITHIONE ZINC\ZINC\ZINC CHLORIDE
  7. AZITHROMYCIN [Concomitant]
     Active Substance: AZITHROMYCIN
  8. SPIRONOLACTONE [Concomitant]
     Active Substance: SPIRONOLACTONE
  9. COLISTIN SULFATE [Concomitant]
     Active Substance: COLISTIN SULFATE
  10. URSODIOL [Concomitant]
     Active Substance: URSODIOL
  11. PULMOZYME [Concomitant]
     Active Substance: DORNASE ALFA
  12. TRIKAFTA [Concomitant]
     Active Substance: ELEXACAFTOR\IVACAFTOR\TEZACAFTOR
  13. VITAMINS [Concomitant]
     Active Substance: VITAMINS
  14. MAGNESIUM [Concomitant]
     Active Substance: MAGNESIUM
  15. IRON [Concomitant]
     Active Substance: IRON
  16. SODIUM CHLORIDE [Concomitant]
     Active Substance: SODIUM CHLORIDE
     Dosage: 3.5 % VIAL-NEB

REACTIONS (2)
  - Cystic fibrosis [Not Recovered/Not Resolved]
  - Respiratory syncytial virus infection [Not Recovered/Not Resolved]
